FAERS Safety Report 7142137-2 (Version None)
Quarter: 2010Q4

REPORT INFORMATION
  Report Type: 
  Country: None (occurrence: None)
  Receive Date: 20101207
  Receipt Date: 20101202
  Transmission Date: 20110411
  Serious: Yes (Other)
  Sender: FDA-Public Use
  Company Number: GXKR2010DE13619

PATIENT
  Age: 16 Year
  Sex: Female

DRUGS (1)
  1. METHOTREXATE [Suspect]
     Indication: MUSCULOSKELETAL PAIN
     Route: 065

REACTIONS (2)
  - INTRAOCULAR PRESSURE INCREASED [None]
  - PNEUMOTHORAX [None]
